FAERS Safety Report 8518742-5 (Version None)
Quarter: 2012Q3

REPORT INFORMATION
  Report Type: 
  Country: None (occurrence: None)
  Receive Date: 20120718
  Receipt Date: 20120711
  Transmission Date: 20120928
  Serious: Yes (Death, Other)
  Sender: FDA-Public Use
  Company Number: PHHY2012JP031991

PATIENT
  Sex: Male
  Weight: 50 kg

DRUGS (16)
  1. EXJADE [Suspect]
     Indication: IRON OVERLOAD
     Dosage: 500 MG, DAILY
     Route: 048
     Dates: start: 20090213, end: 20090409
  2. RED BLOOD CELLS, CONCENTRATED [Concomitant]
     Dosage: 2 U, EVERY TWO WEEKS
     Dates: start: 20090521
  3. PLATELETS [Concomitant]
     Dosage: 10 U EVERY TWO WEEKS
     Dates: start: 20090313
  4. RED BLOOD CELLS, CONCENTRATED [Concomitant]
     Dosage: 2 U, EVERY TWO WEEKS
     Dates: start: 20090212, end: 20090507
  5. DIFLUCAN [Concomitant]
     Dosage: 100 MG, UNK
     Route: 048
     Dates: start: 20090522, end: 20090619
  6. BESTATIN [Concomitant]
     Indication: ACUTE MYELOID LEUKAEMIA
     Dosage: 30 MG, UNK
     Route: 048
     Dates: start: 20090213
  7. MAXIPIME [Concomitant]
     Dosage: 2 G, UNK
     Dates: start: 20090811, end: 20090815
  8. METHYLPREDNISOLONE SODIUM SUCCINATE [Concomitant]
     Dates: start: 20090807, end: 20090811
  9. EXJADE [Suspect]
     Dosage: 500 MG, DAILY
     Route: 048
     Dates: start: 20090508, end: 20090814
  10. RED BLOOD CELLS, CONCENTRATED [Concomitant]
     Dosage: 10 U, EVERY 2 TO 3 WEEKS
     Dates: start: 20090807
  11. GLAKAY [Concomitant]
     Dosage: 45 MG, UNK
     Route: 048
     Dates: start: 20090213
  12. CYTARABINE [Concomitant]
     Dosage: 12 MG, UNK
     Dates: start: 20090801, end: 20090810
  13. OMEPRAZOLE [Concomitant]
     Dosage: 10 MG, UNK
     Route: 048
     Dates: start: 20090213
  14. OZEX [Concomitant]
     Dosage: 450 MG, UNK
     Route: 048
     Dates: start: 20090514, end: 20090604
  15. EXJADE [Suspect]
     Dosage: 1000 MG, DAILY
     Route: 048
     Dates: start: 20090410, end: 20090507
  16. RED BLOOD CELLS, CONCENTRATED [Concomitant]
     Dosage: 10 U, EVERY 2 TO 3 WEEKS
     Dates: start: 20090513, end: 20090731

REACTIONS (8)
  - PYREXIA [None]
  - MALNUTRITION [None]
  - NEOPLASM MALIGNANT [None]
  - BLOOD CREATININE INCREASED [None]
  - PNEUMONIA [None]
  - NEOPLASM PROGRESSION [None]
  - PAIN [None]
  - PERFORMANCE STATUS DECREASED [None]
